FAERS Safety Report 8496314-9 (Version None)
Quarter: 2012Q2

REPORT INFORMATION
  Report Type: 
  Country: None (occurrence: None)
  Receive Date: 20120405
  Receipt Date: 20110701
  Transmission Date: 20120825
  Serious: Yes (Other)
  Sender: FDA-Public Use
  Company Number: PHHY2011US58839

PATIENT
  Sex: Male

DRUGS (7)
  1. LOTREL [Suspect]
     Indication: HYPERTENSION
  2. EXCEDRIN (CAFFEINE, PARACETAMOL) [Concomitant]
  3. INSULIN (INSULIN) [Concomitant]
  4. BAYER BACK + BODY [Concomitant]
  5. MILK THISTLE [Concomitant]
  6. NORMODYNE [Concomitant]
  7. ASPIRIN [Concomitant]

REACTIONS (3)
  - BACK DISORDER [None]
  - MUSCULAR WEAKNESS [None]
  - BLOOD PRESSURE INCREASED [None]
